FAERS Safety Report 14633976 (Version 1)
Quarter: 2018Q1

REPORT INFORMATION
  Report Type: Spontaneous
  Country: TR (occurrence: TR)
  Receive Date: 20180314
  Receipt Date: 20180314
  Transmission Date: 20180509
  Serious: Yes (Hospitalization, Other)
  Sender: FDA-Public Use
  Company Number: TR-009507513-1205USA04207

PATIENT
  Age: 18 Year
  Sex: Male

DRUGS (2)
  1. FLUTICASONE PROPIONATE (+) SALMETEROL XINAFOATE [Concomitant]
     Active Substance: FLUTICASONE PROPIONATE\SALMETEROL XINAFOATE
     Indication: ASTHMA
     Dosage: 500/50 MICROGRAM, BID
  2. MONTELUKAST SODIUM. [Suspect]
     Active Substance: MONTELUKAST SODIUM
     Indication: DYSPNOEA
     Route: 048

REACTIONS (1)
  - Eosinophilic granulomatosis with polyangiitis [Recovering/Resolving]
